FAERS Safety Report 8404704-5 (Version None)
Quarter: 2012Q2

REPORT INFORMATION
  Report Type: 
  Country: None (occurrence: None)
  Receive Date: 20120601
  Receipt Date: 20120524
  Transmission Date: 20120825
  Serious: Yes (Death)
  Sender: FDA-Public Use
  Company Number: AU-BAXTER-2012BAX006770

PATIENT
  Age: 62 Year
  Sex: Male

DRUGS (3)
  1. PHYSIONEAL 40 GLUCOSE 2.25 PERCENT W_V PERITONEAL DIALYSIS SOLUTION TW [Suspect]
     Indication: PERITONEAL DIALYSIS
     Route: 033
  2. PHYSIONEAL 40 GLUCOSE 1.36 PERCENT W_V PERITONEAL DIALYSIS SOLUTION TW [Suspect]
     Indication: PERITONEAL DIALYSIS
     Route: 033
  3. EXTRANEAL [Suspect]
     Indication: PERITONEAL DIALYSIS
     Route: 033
     Dates: end: 20120524

REACTIONS (1)
  - DEATH [None]
